FAERS Safety Report 16291061 (Version 1)
Quarter: 2019Q2

REPORT INFORMATION
  Report Type: Report from Study
  Country: US (occurrence: US)
  Receive Date: 20190509
  Receipt Date: 20190509
  Transmission Date: 20190711
  Serious: Yes (Other)
  Sender: FDA-Public Use
  Company Number: US-EMD SERONO-9089433

PATIENT
  Sex: Female

DRUGS (1)
  1. REBIF [Suspect]
     Active Substance: INTERFERON BETA-1A
     Indication: PRODUCT USED FOR UNKNOWN INDICATION
     Route: 058
     Dates: start: 20170626

REACTIONS (4)
  - Clostridium difficile colitis [Unknown]
  - Eye operation [Unknown]
  - Denture wearer [Unknown]
  - Tooth extraction [Unknown]

NARRATIVE: CASE EVENT DATE: 2018
